FAERS Safety Report 16427323 (Version 1)
Quarter: 2019Q3

REPORT INFORMATION
  Report Type: Spontaneous
  Country: US (occurrence: US)
  Receive Date: 20190612
  Receipt Date: 20190612
  Transmission Date: 20191004
  Serious: Yes (Disabling, Other)
  Sender: FDA-Public Use
  Company Number: None

PATIENT
  Age: 24 Year
  Sex: Female
  Weight: 57.6 kg

DRUGS (2)
  1. AJOVY [Suspect]
     Active Substance: FREMANEZUMAB-VFRM
     Indication: MIGRAINE
     Dosage: ?          QUANTITY:1 INJECTION(S);OTHER FREQUENCY:EVERY 4 WEEKS;?
     Route: 058
     Dates: start: 20181119, end: 20190519
  2. TROKENDI XR [Suspect]
     Active Substance: TOPIRAMATE
     Indication: MIGRAINE
     Dates: start: 20180424, end: 20180901

REACTIONS (34)
  - Raynaud^s phenomenon [None]
  - Hypersomnia [None]
  - Muscle fatigue [None]
  - Flushing [None]
  - Depression [None]
  - Weight decreased [None]
  - Staphylococcal infection [None]
  - Impaired healing [None]
  - Folliculitis [None]
  - Visual impairment [None]
  - Stress [None]
  - Poor peripheral circulation [None]
  - Chillblains [None]
  - Temperature regulation disorder [None]
  - Irritable bowel syndrome [None]
  - Vitamin D decreased [None]
  - Thinking abnormal [None]
  - Pyoderma gangrenosum [None]
  - Alopecia [None]
  - Arthralgia [None]
  - Nystagmus [None]
  - Fatigue [None]
  - Dry eye [None]
  - Paraesthesia [None]
  - Anxiety [None]
  - Dry skin [None]
  - Hyperaesthesia [None]
  - Chromaturia [None]
  - Contusion [None]
  - Feeling abnormal [None]
  - Oligomenorrhoea [None]
  - Pruritus [None]
  - Dizziness [None]
  - Heart rate decreased [None]

NARRATIVE: CASE EVENT DATE: 20181201
